FAERS Safety Report 8735297 (Version 6)
Quarter: 2012Q4

REPORT INFORMATION
  Report Type: 
  Country: GB (occurrence: GB)
  Receive Date: 20120821
  Receipt Date: 20120906
  Transmission Date: 20130627
  Serious: Yes (Other)
  Sender: FDA-Public Use
  Company Number: GB-MYLANLABS-2012S1016690

PATIENT
  Sex: Male
  Weight: 3.1 kg

DRUGS (6)
  1. ZIDOVUDINE [Suspect]
     Route: 064
  2. NEVIRAPINE [Suspect]
     Route: 064
  3. LAMIVUDINE [Suspect]
     Route: 064
  4. LOPINAVIR W/RITONAVIR [Suspect]
     Route: 064
  5. RALTEGRAVIR [Suspect]
     Route: 064
  6. TENOFOVIR [Suspect]
     Route: 064

REACTIONS (2)
  - Volvulus [Not Recovered/Not Resolved]
  - Foetal exposure during pregnancy [None]
